FAERS Safety Report 7057192-8 (Version None)
Quarter: 2010Q4

REPORT INFORMATION
  Report Type: 
  Country: None (occurrence: None)
  Receive Date: 20101021
  Receipt Date: 20101021
  Transmission Date: 20110411
  Serious: No
  Sender: FDA-Public Use
  Company Number: None

PATIENT
  Sex: Female
  Weight: 51.7 kg

DRUGS (1)
  1. GEMCITABINE HCL [Suspect]
     Dosage: 3575 MG
     Dates: end: 20100923

REACTIONS (5)
  - ASCITES [None]
  - CACHEXIA [None]
  - DRUG TOXICITY [None]
  - GENERALISED OEDEMA [None]
  - PLEURAL EFFUSION [None]
